FAERS Safety Report 21058523 (Version 3)
Quarter: 2023Q1

REPORT INFORMATION
  Report Type: Report from Study
  Country: CA (occurrence: CA)
  Receive Date: 20220708
  Receipt Date: 20230324
  Transmission Date: 20230418
  Serious: Yes (Other)
  Sender: FDA-Public Use
  Company Number: CA-MMM-38XNLFHS

PATIENT

DRUGS (7)
  1. MEPOLIZUMAB [Suspect]
     Active Substance: MEPOLIZUMAB
     Indication: Asthma
     Dosage: 100 MG, Z
     Route: 058
     Dates: start: 20200320
  2. VYVANSE [Suspect]
     Active Substance: LISDEXAMFETAMINE DIMESYLATE
     Indication: Product used for unknown indication
     Dosage: UNK
     Dates: start: 201911, end: 2021
  3. PREDNISONE [Concomitant]
     Active Substance: PREDNISONE
     Indication: Dyspnoea
     Dosage: UNK
  4. PNEUMOCOCCAL VACCINE POLYVALENT [Concomitant]
     Active Substance: PNEUMOCOCCAL VACCINE POLYVALENT
     Indication: Product used for unknown indication
     Dosage: UNK
  5. VENTOLIN [Concomitant]
     Active Substance: ALBUTEROL SULFATE
     Indication: Product used for unknown indication
     Dosage: 1 PUFF(S), PRN (AS NEEDED)
     Route: 055
  6. CEPHALEXIN [Concomitant]
     Active Substance: CEPHALEXIN
     Indication: Localised infection
     Dosage: 1 DF, QID 500MG  2 WEEKS
     Dates: start: 202110
  7. CEPHALEXIN [Concomitant]
     Active Substance: CEPHALEXIN
     Dosage: 1 DF (TABLET), QID
     Dates: start: 20220610

REACTIONS (25)
  - Pneumonia [Recovered/Resolved]
  - Localised infection [Unknown]
  - Ocular hyperaemia [Unknown]
  - Eye discharge [Unknown]
  - Eye pruritus [Unknown]
  - Depression [Unknown]
  - Coronavirus infection [Unknown]
  - Fatigue [Unknown]
  - Chest discomfort [Unknown]
  - Dyspnoea [Unknown]
  - Eye infection [Recovered/Resolved]
  - Chest pain [Unknown]
  - Hypoaesthesia [Unknown]
  - Anxiety [Unknown]
  - Rash [Unknown]
  - Heart rate irregular [Unknown]
  - Arthritis [Unknown]
  - Myalgia [Unknown]
  - Musculoskeletal discomfort [Unknown]
  - Insomnia [Unknown]
  - Flushing [Unknown]
  - Productive cough [Recovered/Resolved]
  - Musculoskeletal chest pain [Recovered/Resolved]
  - Hypersensitivity [Unknown]
  - Patient isolation [Unknown]

NARRATIVE: CASE EVENT DATE: 20210101
